FAERS Safety Report 5101992-8 (Version None)
Quarter: 2006Q3

REPORT INFORMATION
  Report Type: 
  Country: None (occurrence: None)
  Receive Date: 20060907
  Receipt Date: 20060825
  Transmission Date: 20061208
  Serious: Yes (Other)
  Sender: FDA-Public Use
  Company Number: 2006103170

PATIENT
  Age: 77 Year
  Sex: Male
  Weight: 87.5442 kg

DRUGS (1)
  1. DETROL LA [Suspect]
     Indication: SLEEP DISORDER
     Dosage: 4 MG (4 MG, 1 IN 1 D),
     Dates: start: 20060101

REACTIONS (1)
  - FLUID RETENTION [None]
